FAERS Safety Report 8850058 (Version 2)
Quarter: 2012Q4

REPORT INFORMATION
  Report Type: 
  Country: AU (occurrence: AU)
  Receive Date: 20121019
  Receipt Date: 20121102
  Transmission Date: 20130627
  Serious: Yes (Death, Other)
  Sender: FDA-Public Use
  Company Number: AU-PFIZER INC-2012255346

PATIENT
  Age: 60 Year
  Sex: Female

DRUGS (1)
  1. REVATIO [Suspect]
     Indication: PULMONARY ARTERIAL HYPERTENSION
     Dosage: 20 mg, 3x/day
     Route: 048
     Dates: start: 20090703, end: 20121015

REACTIONS (2)
  - Sudden cardiac death [Fatal]
  - Pulmonary hypertension [Fatal]
